FAERS Safety Report 10475105 (Version 1)
Quarter: 2014Q3

REPORT INFORMATION
  Report Type: Spontaneous
  Country: DE (occurrence: DE)
  Receive Date: 20140925
  Receipt Date: 20140925
  Transmission Date: 20150326
  Serious: Yes (Congenital Anomaly, Other)
  Sender: FDA-Public Use
  Company Number: DE-AUROBINDO-AUR-APL-2014-09973

PATIENT
  Age: 1 Day
  Sex: Male
  Weight: 3.4 kg

DRUGS (6)
  1. METFORMIN [Suspect]
     Active Substance: METFORMIN HYDROCHLORIDE
     Indication: TYPE 2 DIABETES MELLITUS
     Dosage: 1000 MG, TWO TIMES A DAY
     Route: 064
     Dates: start: 20130310, end: 20130425
  2. JANUVIA [Suspect]
     Active Substance: SITAGLIPTIN PHOSPHATE
     Indication: TYPE 2 DIABETES MELLITUS
     Dosage: 100 MG, ONCE A DAY
     Route: 064
     Dates: start: 20130310, end: 20130425
  3. RAMIPRIL 10MG [Suspect]
     Active Substance: RAMIPRIL
     Indication: HYPERTENSION
     Dosage: 10 MG, ONCE A DAY
     Route: 064
     Dates: start: 20130310, end: 20130425
  4. L-THYROXIN [Concomitant]
     Active Substance: LEVOTHYROXINE SODIUM
     Indication: AUTOIMMUNE THYROIDITIS
     Dosage: 75 ?G, ONCE A DAY
     Route: 064
     Dates: start: 20130310, end: 20131113
  5. METOPROLOL [Concomitant]
     Active Substance: METOPROLOL
     Indication: HYPERTENSION
     Dosage: 95 MG, ONCE A DAY
     Route: 064
     Dates: start: 20130502, end: 20131113
  6. METHYLDOPA. [Concomitant]
     Active Substance: METHYLDOPA
     Indication: HYPERTENSION
     Dosage: 1000 MG, ONCE A DAY
     Route: 064
     Dates: start: 20130502, end: 20131113

REACTIONS (5)
  - Atrial septal defect [Unknown]
  - Diabetic foetopathy [Recovered/Resolved]
  - Foetal exposure during pregnancy [Unknown]
  - Large for dates baby [Recovering/Resolving]
  - Premature baby [Unknown]

NARRATIVE: CASE EVENT DATE: 20131113
